FAERS Safety Report 8784275 (Version 2)
Quarter: 2013Q4

REPORT INFORMATION
  Report Type: Spontaneous
  Country: US (occurrence: US)
  Receive Date: 20120913
  Receipt Date: 20131223
  Transmission Date: 20140711
  Serious: No
  Sender: FDA-Public Use
  Company Number: US-ASTRAZENECA-2012SE69602

PATIENT
  Age: 30 Year
  Sex: Male
  Weight: 170.1 kg

DRUGS (4)
  1. NEXIUM [Suspect]
     Indication: DYSPEPSIA
     Route: 048
     Dates: start: 200906, end: 20131208
  2. NEXIUM [Suspect]
     Indication: GASTROOESOPHAGEAL REFLUX DISEASE
     Route: 048
     Dates: start: 200906, end: 20131208
  3. ZEGRID OTC [Suspect]
     Route: 065
  4. TYLENOL [Concomitant]

REACTIONS (4)
  - Exposure via father [Unknown]
  - Dyspepsia [Unknown]
  - Drug dose omission [Unknown]
  - Drug effect decreased [Unknown]
